FAERS Safety Report 7434164-2 (Version None)
Quarter: 2011Q2

REPORT INFORMATION
  Report Type: 
  Country: None (occurrence: None)
  Receive Date: 20110425
  Receipt Date: 20110418
  Transmission Date: 20111010
  Serious: No
  Sender: FDA-Public Use
  Company Number: US-PFIZER INC-2011085057

PATIENT
  Sex: Female
  Weight: 113 kg

DRUGS (2)
  1. PREMARIN [Suspect]
     Indication: HORMONE THERAPY
     Dosage: 1.25 MG, 1X/DAY
  2. KLONOPIN [Concomitant]
     Dosage: 1 MG, UNK

REACTIONS (3)
  - MOOD ALTERED [None]
  - AGGRESSION [None]
  - MOOD SWINGS [None]
